FAERS Safety Report 11538421 (Version 1)
Quarter: 2015Q3

REPORT INFORMATION
  Report Type: Spontaneous
  Country: AU (occurrence: AU)
  Receive Date: 20150922
  Receipt Date: 20150922
  Transmission Date: 20151125
  Serious: Yes (Other)
  Sender: FDA-Public Use
  Company Number: AU-BAUSCH-BL-2015-021802

PATIENT
  Age: 62 Year
  Sex: Male

DRUGS (6)
  1. CYCLOSPORIN [Suspect]
     Active Substance: CYCLOSPORINE
     Indication: PROTEINURIA
     Route: 065
  2. PREDNISOLONE. [Suspect]
     Active Substance: PREDNISOLONE
     Indication: FOCAL SEGMENTAL GLOMERULOSCLEROSIS
     Dosage: 3 MONTH TAPERING COURSE
     Route: 048
  3. PREDNISOLONE. [Suspect]
     Active Substance: PREDNISOLONE
     Dosage: SIX MONTH REGIMEN OF HIGH DOSE ALTERNATE DAY
     Route: 048
  4. PREDNISOLONE. [Suspect]
     Active Substance: PREDNISOLONE
     Indication: PROTEINURIA
     Dosage: SIX MONTH REGIMEN OF HIGH DOSE ALTERNATE DAY
     Route: 048
  5. ABATACEPT [Suspect]
     Active Substance: ABATACEPT
     Indication: FOCAL SEGMENTAL GLOMERULOSCLEROSIS
     Dosage: 4 DOSES OF ABATACEPT (750 MG IV) OVER A 4 MONTH PERIOD
     Route: 042
  6. CYCLOPHOSPHAMIDE. [Concomitant]
     Active Substance: CYCLOPHOSPHAMIDE
     Indication: PRODUCT USED FOR UNKNOWN INDICATION
     Dosage: SIX MONTH REGIMEN OF HIGH DOSE ALTERNATE DAY

REACTIONS (1)
  - Drug resistance [Unknown]
